FAERS Safety Report 12976078 (Version 1)
Quarter: 2016Q4

REPORT INFORMATION
  Report Type: Spontaneous
  Country: US (occurrence: US)
  Receive Date: 20161126
  Receipt Date: 20161126
  Transmission Date: 20170207
  Serious: Yes (Other)
  Sender: FDA-Public Use
  Company Number: US-ASTRAZENECA-2016SF23685

PATIENT
  Age: 18749 Day
  Sex: Female

DRUGS (27)
  1. IBRANCE [Suspect]
     Active Substance: PALBOCICLIB
     Route: 048
     Dates: start: 201510
  2. THORNE [Concomitant]
     Indication: THYROID FUNCTION TEST ABNORMAL
     Route: 048
     Dates: start: 20150723
  3. MELATONIN [Concomitant]
     Active Substance: MELATONIN
     Indication: SLEEP DISORDER
     Route: 048
     Dates: start: 20140130
  4. COENZYME Q10 [Concomitant]
     Active Substance: UBIDECARENONE
     Indication: ASTHENIA
     Route: 048
     Dates: start: 20160817
  5. LACTOBACILLUS RHAMNOSUS [Concomitant]
     Active Substance: LACTOBACILLUS RHAMNOSUS
  6. ASTRAGALUS EXTRACT [Concomitant]
     Indication: IMMUNE SYSTEM DISORDER
     Dosage: TWO CAPSULES THRICE A DAY
     Route: 048
     Dates: start: 20160325
  7. TAMOXIFEN [Suspect]
     Active Substance: TAMOXIFEN
     Route: 048
     Dates: start: 201207
  8. VITAMIN D3 [Concomitant]
     Active Substance: CHOLECALCIFEROL
     Route: 065
     Dates: start: 20150604
  9. MELATONIN [Concomitant]
     Active Substance: MELATONIN
     Indication: IMMUNE SYSTEM DISORDER
     Route: 048
     Dates: start: 20140130
  10. WHEY PROTEIN POWDER [Concomitant]
     Indication: ASTHENIA
     Dosage: ONE TO TWO SCOOPS DAILY
     Route: 065
     Dates: start: 20160520
  11. THORNE [Concomitant]
     Indication: ASTHENIA
     Route: 048
     Dates: start: 20150723
  12. METHYL GUARD PLUS [Concomitant]
     Indication: ASTHENIA
     Dosage: ONE TO TWO CAPSULE DAILY
     Route: 065
  13. ELTROXIN [Concomitant]
     Active Substance: LEVOTHYROXINE
     Route: 048
     Dates: start: 20140130
  14. LETROZOLE. [Concomitant]
     Active Substance: LETROZOLE
  15. BIOTIN [Concomitant]
     Active Substance: BIOTIN
     Indication: HAIR DISORDER
     Route: 048
     Dates: start: 20131209
  16. ARIMIDEX [Suspect]
     Active Substance: ANASTROZOLE
     Dosage: DOSING UNKNOWN
     Route: 048
     Dates: start: 20120525, end: 20130524
  17. SHARK LIVER OIL [Concomitant]
     Active Substance: SHARK LIVER OIL
     Indication: PLATELET COUNT ABNORMAL
     Route: 048
  18. FISH OIL [Concomitant]
     Active Substance: FISH OIL
  19. COENZYME Q10 [Concomitant]
     Active Substance: UBIDECARENONE
     Indication: CARDIAC DISORDER
     Route: 048
     Dates: start: 20160817
  20. ZOLPIDEM [Concomitant]
     Active Substance: ZOLPIDEM\ZOLPIDEM TARTRATE
     Route: 048
     Dates: start: 20160520
  21. ACETYL L-CARNITINE [Concomitant]
     Active Substance: ACETYLCARNITINE
     Indication: METABOLIC DISORDER
     Dosage: TWO CAPSULES TWICE A DAY
     Route: 048
     Dates: start: 20150305
  22. ACETYL L-CARNITINE [Concomitant]
     Active Substance: ACETYLCARNITINE
     Indication: NERVE INJURY
     Dosage: TWO CAPSULES TWICE A DAY
     Route: 048
     Dates: start: 20150305
  23. ZOLADEX [Suspect]
     Active Substance: GOSERELIN ACETATE
     Dosage: DOSING UNKNOWN
     Route: 058
     Dates: start: 20120525, end: 20130524
  24. WOMEN^S CENTRUM MULTIVITAMIN [Concomitant]
     Route: 065
  25. METHYL GUARD PLUS [Concomitant]
     Indication: SLEEP DISORDER
     Dosage: ONE TO TWO CAPSULE DAILY
     Route: 065
  26. LEXAPRO [Concomitant]
     Active Substance: ESCITALOPRAM OXALATE
  27. BIOTIN [Concomitant]
     Active Substance: BIOTIN
     Indication: NAIL DISORDER
     Route: 048
     Dates: start: 20131209

REACTIONS (7)
  - Malignant neoplasm progression [Not Recovered/Not Resolved]
  - Spinal cord disorder [Unknown]
  - Diarrhoea [Unknown]
  - Constipation [Unknown]
  - Abdominal pain [Unknown]
  - Pulmonary mass [Unknown]
  - Cholelithiasis [Unknown]

NARRATIVE: CASE EVENT DATE: 20120809
